FAERS Safety Report 17189472 (Version 1)
Quarter: 2019Q4

REPORT INFORMATION
  Report Type: Spontaneous
  Country: FR (occurrence: FR)
  Receive Date: 20191223
  Receipt Date: 20191223
  Transmission Date: 20200122
  Serious: Yes (Hospitalization)
  Sender: FDA-Public Use
  Company Number: FR-TEVA-2019-FR-1154512

PATIENT
  Age: 93 Year
  Sex: Female
  Weight: 58 kg

DRUGS (3)
  1. FUROSEMIDE. [Suspect]
     Active Substance: FUROSEMIDE
     Indication: PRODUCT USED FOR UNKNOWN INDICATION
     Dosage: 40 MG
     Route: 048
     Dates: end: 20191106
  2. VANCOMYCINE [Suspect]
     Active Substance: VANCOMYCIN
     Indication: URINARY TRACT INFECTION
     Dosage: 2000 MG
     Route: 042
     Dates: start: 20191030, end: 20191103
  3. GENTAMICINE [Suspect]
     Active Substance: GENTAMICIN
     Indication: URINARY TRACT INFECTION
     Dosage: 232 MG
     Route: 042
     Dates: start: 20191030, end: 20191101

REACTIONS (2)
  - Acute kidney injury [Recovering/Resolving]
  - Antibiotic level above therapeutic [Recovered/Resolved]

NARRATIVE: CASE EVENT DATE: 20191101
